FAERS Safety Report 12653612 (Version 1)
Quarter: 2016Q3

REPORT INFORMATION
  Report Type: Spontaneous
  Country: DE (occurrence: DE)
  Receive Date: 20160815
  Receipt Date: 20160815
  Transmission Date: 20161109
  Serious: Yes (Congenital Anomaly)
  Sender: FDA-Public Use
  Company Number: DE-ASTRAZENECA-2016SE85836

PATIENT
  Sex: Male
  Weight: 2.9 kg

DRUGS (3)
  1. QUETIAPINE. [Suspect]
     Active Substance: QUETIAPINE
     Indication: DEPRESSION
     Dosage: 100 (MG/D )/ DOSAGE BETWEEN 100 AND 50 MG/D
     Route: 064
     Dates: start: 20150804, end: 20160422
  2. FOLSAEURE [Concomitant]
     Active Substance: FOLIC ACID
     Indication: NEURAL TUBE DEFECT
     Route: 064
  3. LAMOTRIGIN [Suspect]
     Active Substance: LAMOTRIGINE
     Indication: EPILEPSY
     Route: 064
     Dates: start: 20150804, end: 20160422

REACTIONS (1)
  - Cleft lip and palate [Unknown]
